FAERS Safety Report 17047899 (Version 2)
Quarter: 2020Q1

REPORT INFORMATION
  Report Type: Not Available
  Country: CA (occurrence: CA)
  Receive Date: 20191119
  Receipt Date: 20200305
  Transmission Date: 20200409
  Serious: Yes (Hospitalization)
  Sender: FDA-Public Use
  Company Number: CA-CELGENEUS-CAN-20191104031

PATIENT
  Age: 58 Year
  Sex: Female

DRUGS (14)
  1. GEMCITABINE. [Suspect]
     Active Substance: GEMCITABINE
     Indication: PANCREATIC CARCINOMA METASTATIC
     Dosage: 1970 MILLIGRAM
     Route: 041
  2. LEVOTHYROXINE SODIUM. [Concomitant]
     Active Substance: LEVOTHYROXINE SODIUM
     Indication: HYPOTHYROIDISM
     Route: 065
  3. ABRAXANE [Suspect]
     Active Substance: PACLITAXEL
     Indication: PANCREATIC CARCINOMA METASTATIC
     Dosage: 246 MILLIGRAM
     Route: 041
  4. TICILIMUMAB [Suspect]
     Active Substance: TREMELIMUMAB
     Indication: PANCREATIC CARCINOMA METASTATIC
     Dosage: 75 MILLIGRAM
     Route: 041
  5. PANCREATIN [Concomitant]
     Active Substance: PANCRELIPASE
     Indication: SUPPLEMENTATION THERAPY
     Route: 065
  6. DURVALUMAB. [Suspect]
     Active Substance: DURVALUMAB
     Indication: PANCREATIC CARCINOMA METASTATIC
     Dosage: 1500 MILLIGRAM
     Route: 041
  7. OXYCODONE [Concomitant]
     Active Substance: OXYCODONE
     Indication: ABDOMINAL PAIN
     Route: 065
  8. CANNABIS SATIVA [Concomitant]
     Active Substance: CANNABIS SATIVA FLOWERING TOP
     Indication: ABDOMINAL PAIN
     Route: 065
  9. HYDROMORPHONE HYDROCHLORIDE. [Concomitant]
     Active Substance: HYDROMORPHONE HYDROCHLORIDE
     Indication: ABDOMINAL PAIN
     Route: 065
  10. METOCLOPRAMIDE HYDROCHLORIDE. [Concomitant]
     Active Substance: METOCLOPRAMIDE HYDROCHLORIDE
     Indication: NAUSEA
     Route: 065
  11. DALTEPARIN SODIUM [Concomitant]
     Active Substance: DALTEPARIN SODIUM
     Indication: EMBOLISM
     Route: 065
  12. SENNA ALEXANDRINA [Concomitant]
     Active Substance: SENNA LEAF
     Indication: CONSTIPATION
     Route: 065
  13. DIMENHYDRINATE. [Concomitant]
     Active Substance: DIMENHYDRINATE
     Indication: NAUSEA
     Route: 065
  14. MACROGOL [Concomitant]
     Active Substance: POLYETHYLENE GLYCOLS
     Indication: CONSTIPATION
     Route: 065

REACTIONS (3)
  - Fall [Recovered/Resolved]
  - Confusional state [Not Recovered/Not Resolved]
  - Pyrexia [Recovered/Resolved]
